FAERS Safety Report 9003496 (Version 1)
Quarter: 2013Q1

REPORT INFORMATION
  Report Type: Spontaneous
  Country: US (occurrence: US)
  Receive Date: 20130108
  Receipt Date: 20130108
  Transmission Date: 20140127
  Serious: Yes (Hospitalization, Other)
  Sender: FDA-Public Use
  Company Number: US-009507513-1301USA001456

PATIENT
  Age: 46 Year
  Sex: Female

DRUGS (6)
  1. MONTELUKAST SODIUM [Suspect]
     Route: 048
  2. ZITHROMAX [Suspect]
     Route: 048
  3. PREDNISONE [Suspect]
  4. BUDESONIDE [Concomitant]
  5. FORMOTEROL FUMARATE [Concomitant]
  6. TERBUTALINE SULFATE [Concomitant]

REACTIONS (14)
  - Urinary casts [Unknown]
  - Pyrexia [Unknown]
  - Proteinuria [Unknown]
  - Pneumonia [Unknown]
  - Myalgia [Unknown]
  - Leukocytosis [Unknown]
  - Haematuria [Unknown]
  - Red blood cell sedimentation rate increased [Unknown]
  - Eosinophilia [Unknown]
  - Dermatitis [Unknown]
  - Allergic granulomatous angiitis [Unknown]
  - Blood creatinine increased [Unknown]
  - Asthma [Unknown]
  - Antibody test positive [Unknown]
